FAERS Safety Report 19906786 (Version 2)
Quarter: 2022Q2

REPORT INFORMATION
  Report Type: Spontaneous
  Country: US (occurrence: US)
  Receive Date: 20211001
  Receipt Date: 20220407
  Transmission Date: 20220720
  Serious: No
  Sender: FDA-Public Use
  Company Number: US-AMNEAL PHARMACEUTICALS-2021-AMRX-03247

PATIENT
  Sex: Female

DRUGS (1)
  1. ELURYNG [Suspect]
     Active Substance: ETHINYL ESTRADIOL\ETONOGESTREL
     Indication: Product used for unknown indication
     Dosage: UNK
     Route: 067

REACTIONS (3)
  - Device breakage [Unknown]
  - Product substitution issue [Unknown]
  - No adverse event [Unknown]
